FAERS Safety Report 15491511 (Version 1)
Quarter: 2018Q4

REPORT INFORMATION
  Report Type: Spontaneous
  Country: JP (occurrence: JP)
  Receive Date: 20181012
  Receipt Date: 20181012
  Transmission Date: 20190205
  Serious: Yes (Hospitalization, Disabling, Other)
  Sender: FDA-Public Use
  Company Number: JP-BRISTOL-MYERS SQUIBB COMPANY-BMS-2018-072211

PATIENT
  Age: 82 Year
  Sex: Female
  Weight: 49 kg

DRUGS (2)
  1. METGLUCO [Suspect]
     Active Substance: METFORMIN HYDROCHLORIDE
     Indication: DIABETES MELLITUS
     Dosage: 250 MG, QD (IN MORNING)
     Route: 048
     Dates: start: 20161108, end: 20170223
  2. NORVASC [Concomitant]
     Active Substance: AMLODIPINE BESYLATE
     Indication: PRODUCT USED FOR UNKNOWN INDICATION
     Dosage: 2.5 MG, QD (IN MORNING)
     Route: 065
     Dates: start: 20161108, end: 20170223

REACTIONS (11)
  - Device related infection [Unknown]
  - Cerebral infarction [Unknown]
  - Hyperglycaemic hyperosmolar nonketotic syndrome [Unknown]
  - Peritonitis [Unknown]
  - Blood glucose increased [Unknown]
  - Femoral neck fracture [Unknown]
  - Depressed level of consciousness [Unknown]
  - Fall [Unknown]
  - Decreased appetite [Not Recovered/Not Resolved]
  - Lactic acidosis [Recovered/Resolved]
  - Loss of personal independence in daily activities [Unknown]

NARRATIVE: CASE EVENT DATE: 20161204
